FAERS Safety Report 9566374 (Version 1)
Quarter: 2013Q3

REPORT INFORMATION
  Report Type: Spontaneous
  Country: NZ (occurrence: NZ)
  Receive Date: 20130930
  Receipt Date: 20130930
  Transmission Date: 20140515
  Serious: Yes (Death)
  Sender: FDA-Public Use
  Company Number: NZ-BAXTER-2013BAX037174

PATIENT
  Age: 82 Year
  Sex: Male

DRUGS (5)
  1. DIANEAL 1MMOL CALCIUM IN 1.5% GLUCOSE PERITONEAL DIALYSIS SOLUTION STA [Suspect]
     Indication: PERITONEAL DIALYSIS
     Route: 033
     Dates: end: 20130919
  2. DIANEAL 1MMOL CALCIUM IN 2.5% GLUCOSE PERITONEAL DIALYSIS SOLUTION SIN [Suspect]
     Indication: PERITONEAL DIALYSIS
     Route: 033
     Dates: end: 20130919
  3. DIANEAL 1MMOL CALCIUM IN 2.5% GLUCOSE PERITONEAL DIALYSIS SOLUTION SIN [Suspect]
     Dates: end: 20130919
  4. DIANEAL 1MMOL CALCIUM IN 2.5% GLUCOSE PERITONEAL DIALYSIS SOLUTION SIN [Suspect]
     Dates: end: 20130919
  5. EXTRANEAL 7.5% W_V ICODEXTRIN PERITONEAL DIALYSIS SOLUTION BAG AHB5546 [Suspect]
     Indication: PERITONEAL DIALYSIS
     Route: 033
     Dates: end: 20130919

REACTIONS (1)
  - Death [Fatal]
